FAERS Safety Report 7296484-4 (Version None)
Quarter: 2011Q1

REPORT INFORMATION
  Report Type: 
  Country: None (occurrence: None)
  Receive Date: 20110216
  Receipt Date: 20110211
  Transmission Date: 20110831
  Serious: Yes (Hospitalization)
  Sender: FDA-Public Use
  Company Number: FR-ROCHE-759645

PATIENT
  Sex: Female
  Weight: 46 kg

DRUGS (5)
  1. PEGINTERFERON ALFA-2A [Suspect]
     Route: 058
     Dates: start: 20101109, end: 20110126
  2. RIBAVIRIN [Suspect]
     Route: 048
     Dates: start: 20101109, end: 20110201
  3. ALDACTONE [Concomitant]
     Dates: start: 20060101
  4. AVLOCARDYL [Concomitant]
     Dates: start: 20060101
  5. ACETAMINOPHEN [Concomitant]
     Dates: start: 20101109

REACTIONS (2)
  - MENINGEAL DISORDER [None]
  - EPISTAXIS [None]
